APPROVED DRUG PRODUCT: ZITUVIMET
Active Ingredient: METFORMIN HYDROCHLORIDE; SITAGLIPTIN
Strength: 500MG;50MG
Dosage Form/Route: TABLET;ORAL
Application: N216743 | Product #001
Applicant: ZYDUS LIFESCIENCES GLOBAL FZE
Approved: Nov 3, 2023 | RLD: Yes | RS: No | Type: RX